FAERS Safety Report 18341498 (Version 1)
Quarter: 2020Q4

REPORT INFORMATION
  Report Type: Spontaneous
  Country: NL (occurrence: NL)
  Receive Date: 20201004
  Receipt Date: 20201004
  Transmission Date: 20210113
  Serious: Yes (Life-Threatening, Other)
  Sender: FDA-Public Use
  Company Number: NL-TEVA-2020-NL-1833691

PATIENT
  Age: 73 Year
  Sex: Male
  Weight: 95.9 kg

DRUGS (19)
  1. OXYCODON TABLET MGA   5MG / BRAND NAME NOT SPECIFIED [Concomitant]
     Active Substance: OXYCODONE
     Dosage: 5 MG, THERAPY START DATE, THERAPY END DATE: ASKED BUT UNKNOWN
  2. METOCLOPRAMIDE TABLET 10MG / BRAND NAME NOT SPECIFIED [Concomitant]
     Dosage: 10 MG, THERAPY START DATE, THERAPY END DATE: ASKED BUT UNKNOWN
  3. OXYCODON TABLET   5MG / BRAND NAME NOT SPECIFIED [Concomitant]
     Dosage: 5 MG, THERAPY START DATE, THERAPY END DATE: ASKED BUT UNKNOWN
  4. BECLOMETASON/FORMOTEROL INHALATIEPOEDER 200/6UG/DO / FOSTER NEXTHALER [Concomitant]
     Dosage: 200/6 UG / DOSE, THERAPY START DATE, THERAPY END DATE: ASKED BUT UNKNOWN
  5. DOXYCYCLINE DISPERTABLET 100MG / BRAND NAME NOT SPECIFIED [Concomitant]
     Dosage: 100 MG, THERAPY START DATE, THERAPY END DATE: ASKED BUT UNKNOWN
  6. DIGOXINE TABLET 0,125MG / BRAND NAME NOT SPECIFIED [Concomitant]
     Dosage: 0.125 MG, THERAPY START DATE, THERAPY END DATE: ASKED BUT UNKNOWN
  7. SALBUTAMOL AEROSOL 100UG/DO / VENTOLIN  100 AER CFKVR 100MCG/DO SPBS 2 [Concomitant]
     Dosage: AEROSOL, 100 UG / DOSE, THERAPY START DATE, THERAPY END DATE: ASKED BUT UNKNOWN
  8. LEUPRORELINE INJECTIEPOEDER 45MG / ELIGARD INJPDR WWSP 45MG + SOLVENS [Concomitant]
     Dosage: POWDER INJECTION FLUID, 45 MG, THERAPY START DATE, THERAPY END DATE: ASKED BUT UNKNOWN
  9. OMEPRAZOL TABLET MSR 20MG / BRAND NAME NOT SPECIFIED [Concomitant]
     Dosage: 20 MG, THERAPY START DATE, THERAPY END DATE: ASKED BUT UNKNOWN
  10. FUROSEMIDE TABLET 40MG / BRAND NAME NOT SPECIFIED [Concomitant]
     Dosage: 40 MG, THERAPY START DATE, THERAPY END DATE: ASKED BUT UNKNOWN
  11. PARACETAMOL TABLET 1000MG / BRAND NAME NOT SPECIFIED [Concomitant]
     Dosage: 1000 MG, THERAPY START DATE, THERAPY END DATE: ASKED BUT UNKNOWN
  12. VANCOMYCINE HYDROCHLORIDE / BRAND NAME NOT SPECIFIED [Suspect]
     Active Substance: VANCOMYCIN
     Indication: CYSTITIS
     Dosage: 3000 MILLIGRAM DAILY;
     Dates: start: 20200912, end: 20200912
  13. APIXABAN TABLET 5MG / BRAND NAME NOT SPECIFIED [Concomitant]
     Dosage: 5 MG, THERAPY START DATE, THERAPY END DATE: ASKED BUT UNKNOWN
  14. PRAVASTATINE TABLET 40MG / BRAND NAME NOT SPECIFIED [Concomitant]
     Dosage: 40 MG, THERAPY START DATE, THERAPY END DATE: ASKED BUT UNKNOWN
  15. TAMSULOSINE CAPSULE MGA 0,4MG / BRAND NAME NOT SPECIFIED [Concomitant]
     Active Substance: TAMSULOSIN HYDROCHLORIDE
     Dosage: 0.4 MG, THERAPY START DATE, THERAPY END DATE: ASKED BUT UNKNOWN
  16. BISOPROLOL TABLET   5MG / BRAND NAME NOT SPECIFIED [Concomitant]
     Dosage: 5 MG, THERAPY START DATE, THERAPY END DATE: ASKED BUT UNKNOWN
  17. CIPROFLOXACINE TABLET 500MG / BRAND NAME NOT SPECIFIED [Concomitant]
     Dosage: 500 MG, THERAPY START DATE, THERAPY END DATE: ASKED BUT UNKNOWN
  18. MONTELUKAST TABLET OMHULD 10MG / BRAND NAME NOT SPECIFIED [Concomitant]
     Dosage: 10 MG, THERAPY START DATE, THERAPY END DATE: ASKED BUT UNKNOWN
  19. MACROGOL/ZOUTEN PDR V DRANK (MOVIC/MOLAX/LAXT/GEN) / BRAND NAME NOT SP [Concomitant]
     Dosage: POWDER FOR DRINK, THERAPY START DATE, THERAPY END DATE: ASKED BUT UNKNOWN

REACTIONS (3)
  - Dyspnoea [Recovering/Resolving]
  - Atrial fibrillation [Recovered/Resolved]
  - Erythema [Recovering/Resolving]

NARRATIVE: CASE EVENT DATE: 20200912
